FAERS Safety Report 4961792-6 (Version None)
Quarter: 2006Q1

REPORT INFORMATION
  Report Type: 
  Country: None (occurrence: None)
  Receive Date: 20060329
  Receipt Date: 20060314
  Transmission Date: 20060701
  Serious: Yes (Death, Hospitalization, Other)
  Sender: FDA-Public Use
  Company Number: USA-2005-0019339

PATIENT
  Age: 34 Year
  Sex: Female

DRUGS (4)
  1. OXYCONTIN [Suspect]
     Indication: FIBROMYALGIA
  2. HYDROCODONE BITARTRATE [Suspect]
     Indication: FIBROMYALGIA
  3. SKELAXIN [Suspect]
  4. PROVIGIL [Concomitant]

REACTIONS (15)
  - ABDOMINAL PAIN [None]
  - ACCIDENTAL DEATH [None]
  - ANXIETY [None]
  - APNOEA [None]
  - ATONIC URINARY BLADDER [None]
  - CARDIO-RESPIRATORY ARREST [None]
  - CONVULSION [None]
  - DEPENDENCE [None]
  - DEPRESSED LEVEL OF CONSCIOUSNESS [None]
  - FIBROMYALGIA [None]
  - HEADACHE [None]
  - MULTIPLE DRUG OVERDOSE ACCIDENTAL [None]
  - NAUSEA [None]
  - PAIN [None]
  - VOMITING [None]
